APPROVED DRUG PRODUCT: FAMCICLOVIR
Active Ingredient: FAMCICLOVIR
Strength: 250MG
Dosage Form/Route: TABLET;ORAL
Application: A077487 | Product #002 | TE Code: AB
Applicant: TEVA PHARMACEUTICALS USA
Approved: Aug 24, 2007 | RLD: No | RS: No | Type: RX